FAERS Safety Report 13597890 (Version 1)
Quarter: 2017Q2

REPORT INFORMATION
  Report Type: Spontaneous
  Country: US (occurrence: US)
  Receive Date: 20170531
  Receipt Date: 20170531
  Transmission Date: 20170830
  Serious: No
  Sender: FDA-Public Use
  Company Number: US-SHIRE-US201711217

PATIENT
  Sex: Female

DRUGS (2)
  1. XIIDRA [Suspect]
     Active Substance: LIFITEGRAST
     Dosage: UNK, UNKNOWN
     Route: 047
     Dates: start: 201705
  2. XIIDRA [Suspect]
     Active Substance: LIFITEGRAST
     Indication: BLEPHARITIS
     Dosage: UNK, UNKNOWN
     Route: 047
     Dates: start: 2017, end: 201705

REACTIONS (3)
  - Instillation site reaction [Unknown]
  - Off label use [Not Recovered/Not Resolved]
  - Anxiety [Unknown]

NARRATIVE: CASE EVENT DATE: 2017
